FAERS Safety Report 9695049 (Version 3)
Quarter: 2013Q4

REPORT INFORMATION
  Report Type: Report from Study
  Country: VE (occurrence: VE)
  Receive Date: 20131119
  Receipt Date: 20131126
  Transmission Date: 20140711
  Serious: Yes (Hospitalization, Disabling, Other)
  Sender: FDA-Public Use
  Company Number: PHHY2011VE95236

PATIENT
  Age: 79 Year
  Sex: Female

DRUGS (3)
  1. ACLASTA [Suspect]
     Indication: OSTEOPOROSIS
     Dosage: 5 MG, ONCE YEAR
     Route: 042
     Dates: start: 201103
  2. NEXIUM [Concomitant]
     Indication: IMPAIRED GASTRIC EMPTYING
     Dosage: 40 MG, UNK
     Route: 048
  3. EUTHYROX [Concomitant]
     Indication: THYROID DISORDER
     Dosage: 50 UG, UNK
     Route: 048

REACTIONS (19)
  - Amnesia [Recovered/Resolved]
  - Depression [Unknown]
  - Decreased appetite [Unknown]
  - Insomnia [Unknown]
  - Influenza [Unknown]
  - Headache [Recovered/Resolved]
  - Bone pain [Recovered/Resolved]
  - Diarrhoea [Recovered/Resolved]
  - Vomiting [Recovered/Resolved]
  - Blood pressure systolic increased [Recovered/Resolved]
  - Cartilage injury [Unknown]
  - Muscular weakness [Recovered/Resolved]
  - Arrhythmia [Unknown]
  - Joint crepitation [Recovered/Resolved]
  - Nervousness [Recovered/Resolved]
  - Abdominal discomfort [Recovered/Resolved]
  - Paraesthesia [Recovered/Resolved]
  - Arthralgia [Recovered/Resolved]
  - Pain in extremity [Recovered/Resolved]
